FAERS Safety Report 17741719 (Version 1)
Quarter: 2020Q2

REPORT INFORMATION
  Report Type: Spontaneous
  Country: FR (occurrence: FR)
  Receive Date: 20200504
  Receipt Date: 20200504
  Transmission Date: 20200714
  Serious: Yes (Hospitalization)
  Sender: FDA-Public Use
  Company Number: FR-BRISTOL-MYERS SQUIBB COMPANY-BMS-2020-034107

PATIENT
  Age: 64 Year
  Sex: Female
  Weight: 59 kg

DRUGS (1)
  1. OPDIVO [Suspect]
     Active Substance: NIVOLUMAB
     Indication: SQUAMOUS CELL CARCINOMA OF LUNG
     Dosage: 1 DOSAGE FORM, EVERY 15 DAY
     Route: 041
     Dates: start: 20200130, end: 20200320

REACTIONS (2)
  - Off label use [Unknown]
  - Alveolitis [Recovering/Resolving]

NARRATIVE: CASE EVENT DATE: 202003
